FAERS Safety Report 21946459 (Version 1)
Quarter: 2023Q1

REPORT INFORMATION
  Report Type: Report from Study
  Country: DE (occurrence: DE)
  Receive Date: 20230202
  Receipt Date: 20230202
  Transmission Date: 20230417
  Serious: Yes (Hospitalization)
  Sender: FDA-Public Use
  Company Number: DE-JNJFOC-20230152581

PATIENT
  Age: 8 Decade
  Sex: Female
  Weight: 75 kg

DRUGS (15)
  1. GUSELKUMAB [Suspect]
     Active Substance: GUSELKUMAB
     Indication: Psoriasis
     Route: 058
     Dates: start: 20210824
  2. MORPHIN SULFATE SINTETICA [Concomitant]
  3. MORPHIN SULFATE SINTETICA [Concomitant]
  4. METAMIZOLE SODIUM [Concomitant]
     Active Substance: METAMIZOLE SODIUM
  5. TOPIRAMATE [Concomitant]
     Active Substance: TOPIRAMATE
  6. PREGABALIN [Concomitant]
     Active Substance: PREGABALIN
  7. PANTOPRAZOLE [Concomitant]
     Active Substance: PANTOPRAZOLE
  8. POLYETHYLENE GLYCOLS [Concomitant]
     Active Substance: POLYETHYLENE GLYCOLS
  9. LISINOPRIL [Concomitant]
     Active Substance: LISINOPRIL
  10. LISINOPRIL [Concomitant]
     Active Substance: LISINOPRIL
  11. AMITRIPTYLINE HYDROCHLORIDE [Concomitant]
     Active Substance: AMITRIPTYLINE HYDROCHLORIDE
  12. DULOXETINE [Concomitant]
     Active Substance: DULOXETINE
  13. ALBUTEROL [Concomitant]
     Active Substance: ALBUTEROL
  14. SODIUM CHLORIDE [Concomitant]
     Active Substance: SODIUM CHLORIDE
  15. LORAZEPAM [Concomitant]
     Active Substance: LORAZEPAM

REACTIONS (2)
  - Pneumonia [Recovered/Resolved]
  - Asthma [Recovered/Resolved]

NARRATIVE: CASE EVENT DATE: 20221114
